FAERS Safety Report 5928488-5 (Version None)
Quarter: 2008Q4

REPORT INFORMATION
  Report Type: 
  Country: None (occurrence: None)
  Receive Date: 20081023
  Receipt Date: 20081020
  Transmission Date: 20090506
  Serious: Yes (Other)
  Sender: FDA-Public Use
  Company Number: US-ASTRAZENECA-2008UW23488

PATIENT
  Age: 58 Year
  Sex: Female
  Weight: 72.6 kg

DRUGS (7)
  1. CRESTOR [Suspect]
     Indication: BLOOD CHOLESTEROL INCREASED
     Route: 048
     Dates: start: 20080901
  2. PLAVIX [Concomitant]
  3. LISINOPRIL [Concomitant]
  4. FLUOXETINE [Concomitant]
  5. HYDROXYZINE HCL [Concomitant]
  6. CLONAZEPAM [Concomitant]
  7. ASPIRIN [Concomitant]

REACTIONS (2)
  - DISCOMFORT [None]
  - STENT PLACEMENT [None]
